FAERS Safety Report 5122421-4 (Version None)
Quarter: 2006Q4

REPORT INFORMATION
  Report Type: 
  Country: None (occurrence: None)
  Receive Date: 20061004
  Receipt Date: 20060922
  Transmission Date: 20070319
  Serious: Yes (Hospitalization)
  Sender: FDA-Public Use
  Company Number: 14860

PATIENT
  Age: 39 Year
  Sex: Male

DRUGS (9)
  1. FLUOROURACIL [Suspect]
     Indication: COLORECTAL CANCER
  2. LEUCOVORIN [Suspect]
     Indication: COLORECTAL CANCER
  3. ELOXATIN [Suspect]
     Indication: COLORECTAL CANCER
     Dosage: 140 MG PER_CYCLE IV
     Route: 042
     Dates: start: 20060907, end: 20060907
  4. ELOXATIN [Suspect]
     Indication: COLORECTAL CANCER
     Dosage: 140 MG PER_CYCLE IV
     Route: 042
     Dates: start: 20060907, end: 20060907
  5. PROCHLORPERAZINE [Concomitant]
  6. LORAZEPAM [Concomitant]
  7. WARFARIN SODIUM [Concomitant]
  8. VICODIN [Concomitant]
  9. VENLAXAFINE HYDROCHLORIDE [Concomitant]

REACTIONS (8)
  - ANGIONEUROTIC OEDEMA [None]
  - CELLULITIS [None]
  - FLUSHING [None]
  - HEART RATE INCREASED [None]
  - INFUSION RELATED REACTION [None]
  - NEUTROPENIA [None]
  - PARAESTHESIA [None]
  - THROMBOPHLEBITIS SUPERFICIAL [None]
